FAERS Safety Report 5633217-9 (Version None)
Quarter: 2008Q1

REPORT INFORMATION
  Report Type: 
  Country: None (occurrence: None)
  Receive Date: 20080215
  Receipt Date: 20080205
  Transmission Date: 20080703
  Serious: No
  Sender: FDA-Public Use
  Company Number: THQ2008A00164

PATIENT
  Sex: Female

DRUGS (1)
  1. LANSOPRAZOLE [Suspect]
     Dosage: 30 MG (1 D) PER ORAL
     Route: 048
     Dates: start: 20071113

REACTIONS (2)
  - NAUSEA [None]
  - VISUAL DISTURBANCE [None]
